FAERS Safety Report 7791716-8 (Version None)
Quarter: 2011Q4

REPORT INFORMATION
  Report Type: 
  Country: None (occurrence: None)
  Receive Date: 20111003
  Receipt Date: 20110922
  Transmission Date: 20120403
  Serious: Yes (Hospitalization, Other)
  Sender: FDA-Public Use
  Company Number: TR-JNJFOC-20110911320

PATIENT
  Age: 56 Year
  Sex: Female

DRUGS (5)
  1. RISPERIDONE [Suspect]
     Route: 065
  2. SERTRALINE HYDROCHLORIDE [Suspect]
     Indication: DEPRESSION
     Route: 065
  3. MIRTAZAPINE [Suspect]
     Indication: DEPRESSION
     Route: 065
  4. RISPERIDONE [Suspect]
     Route: 065
  5. RISPERIDONE [Suspect]
     Indication: DEPRESSION
     Route: 065

REACTIONS (3)
  - DRUG INEFFECTIVE [None]
  - REFUSAL OF TREATMENT BY PATIENT [None]
  - SUICIDE ATTEMPT [None]
